FAERS Safety Report 5716350-2 (Version None)
Quarter: 2008Q2

REPORT INFORMATION
  Report Type: 
  Country: None (occurrence: None)
  Receive Date: 20080422
  Receipt Date: 20080407
  Transmission Date: 20081010
  Serious: Yes (Other)
  Sender: FDA-Public Use
  Company Number: 2008S1005720

PATIENT
  Age: 53 Year
  Sex: Male

DRUGS (6)
  1. MIRTAZAPINE [Suspect]
     Indication: DRUG USE FOR UNKNOWN INDICATION
     Dosage: 15 MG ORAL; ORAL; 30 MG ORAL; ORAL
     Route: 048
     Dates: start: 20070201, end: 20070529
  2. MIRTAZAPINE [Suspect]
     Indication: DRUG USE FOR UNKNOWN INDICATION
     Dosage: 15 MG ORAL; ORAL; 30 MG ORAL; ORAL
     Route: 048
     Dates: start: 20070529, end: 20070608
  3. MIRTAZAPINE [Suspect]
     Indication: DRUG USE FOR UNKNOWN INDICATION
     Dosage: 15 MG ORAL; ORAL; 30 MG ORAL; ORAL
     Route: 048
     Dates: start: 20070906, end: 20070914
  4. MIRTAZAPINE [Suspect]
     Indication: DRUG USE FOR UNKNOWN INDICATION
     Dosage: 15 MG ORAL; ORAL; 30 MG ORAL; ORAL
     Route: 048
     Dates: start: 20070914
  5. DOSULEPIN [Concomitant]
  6. ESCITALOPRAM [Concomitant]

REACTIONS (5)
  - ABNORMAL DREAMS [None]
  - ALCOHOL INTERACTION [None]
  - HOMICIDE [None]
  - JOINT SWELLING [None]
  - OEDEMA PERIPHERAL [None]
